FAERS Safety Report 20899110 (Version 1)
Quarter: 2022Q2

REPORT INFORMATION
  Report Type: Spontaneous
  Country: US (occurrence: US)
  Receive Date: 20220601
  Receipt Date: 20220601
  Transmission Date: 20220720
  Serious: Yes (Other)
  Sender: FDA-Public Use
  Company Number: US-LUNDBECK-DKLU3048454

PATIENT
  Age: 8 Year
  Sex: Male

DRUGS (7)
  1. SABRIL [Suspect]
     Active Substance: VIGABATRIN
     Indication: Partial seizures
     Dosage: OVERDOSE: 4000MG DAILY
     Route: 048
     Dates: start: 20171106
  2. SABRIL [Suspect]
     Active Substance: VIGABATRIN
     Indication: Focal dyscognitive seizures
  3. SABRIL [Suspect]
     Active Substance: VIGABATRIN
     Indication: Epilepsy
  4. SABRIL [Suspect]
     Active Substance: VIGABATRIN
     Indication: Status epilepticus
  5. EPIDIOLEX [Suspect]
     Active Substance: CANNABIDIOL
     Indication: Product used for unknown indication
     Route: 065
  6. VIMPAT [Suspect]
     Active Substance: LACOSAMIDE
     Indication: Product used for unknown indication
     Route: 065
  7. CLONAZEPAM [Suspect]
     Active Substance: CLONAZEPAM
     Indication: Product used for unknown indication
     Route: 065

REACTIONS (2)
  - Seizure [Unknown]
  - Prescribed overdose [Unknown]
